FAERS Safety Report 5051405-X (Version None)
Quarter: 2006Q3

REPORT INFORMATION
  Report Type: 
  Country: None (occurrence: None)
  Receive Date: 20060714
  Receipt Date: 20051103
  Transmission Date: 20061208
  Serious: Yes (Hospitalization, Disabling)
  Sender: FDA-Public Use
  Company Number: US-ROCHE-423644

PATIENT
  Age: 16 Year
  Sex: Male
  Weight: 86.2 kg

DRUGS (1)
  1. ACCUTANE [Suspect]
     Route: 048
     Dates: start: 19850615, end: 19850615

REACTIONS (19)
  - ANHEDONIA [None]
  - ANKLE FRACTURE [None]
  - ANXIETY [None]
  - ATROPHY [None]
  - CAPILLARY DISORDER [None]
  - CLAVICLE FRACTURE [None]
  - COLITIS [None]
  - CROHN'S DISEASE [None]
  - EXOSTOSIS [None]
  - FAECES DISCOLOURED [None]
  - GASTROINTESTINAL DISORDER [None]
  - INFLAMMATION [None]
  - INFLAMMATORY BOWEL DISEASE [None]
  - INJURY [None]
  - INTESTINAL HAEMORRHAGE [None]
  - MUCOUS MEMBRANE DISORDER [None]
  - NASAL SEPTUM DEVIATION [None]
  - RECTAL HAEMORRHAGE [None]
  - WRIST FRACTURE [None]
